FAERS Safety Report 8066243-3 (Version None)
Quarter: 2012Q1

REPORT INFORMATION
  Report Type: 
  Country: None (occurrence: None)
  Receive Date: 20120124
  Receipt Date: 20120108
  Transmission Date: 20120608
  Serious: Yes (Hospitalization, Other)
  Sender: FDA-Public Use
  Company Number: JP-COVIDIEN/TYCO HEALTHCARE/MALLINCKRODT-T201200441

PATIENT
  Sex: Female
  Weight: 54.3 kg

DRUGS (21)
  1. METHADONE HCL [Suspect]
     Dosage: 50 MG, QD
     Route: 048
     Dates: start: 20110711, end: 20110908
  2. PL GRANULE [Concomitant]
     Indication: HEADACHE
     Dosage: 1 G, PRN
     Dates: start: 20110609
  3. METHADONE HCL [Suspect]
     Dosage: 75 MG, QD
     Route: 048
     Dates: start: 20110708, end: 20110710
  4. AZNOL [Concomitant]
     Dosage: UNK
     Route: 061
     Dates: start: 20110609
  5. METHADONE HCL [Suspect]
     Dosage: 45 MG, QD
     Route: 048
     Dates: start: 20110114, end: 20110614
  6. METHADONE HCL [Suspect]
     Dosage: 60 MG, QD
     Route: 048
     Dates: start: 20111228, end: 20120104
  7. TRANEXAMIC ACID [Concomitant]
     Dosage: 750 MG, QD
  8. METHADONE HCL [Suspect]
     Dosage: 75 MG, QD
     Route: 048
     Dates: start: 20111202, end: 20111226
  9. METHADONE HCL [Suspect]
     Dosage: 50 MG, QD
     Route: 048
     Dates: start: 20111227
  10. ADONA                              /00056903/ [Concomitant]
     Dosage: 90 MG, QD
  11. TALIZER [Concomitant]
     Dosage: 100 MG, QD
  12. FUROSEMIDE [Concomitant]
     Dosage: 40 MG, QD
  13. METHADONE HCL [Suspect]
     Indication: CANCER PAIN
     Dosage: 40 MG, QD
     Route: 048
     Dates: start: 20120105, end: 20120108
  14. OXINORM                            /00045603/ [Concomitant]
     Indication: CANCER PAIN
     Dosage: 30 MG, PRN, 0.5%
  15. CELECOXIB [Concomitant]
     Dosage: 200 MG, BID
  16. METHADONE HCL [Suspect]
     Dosage: 60 MG, QD
     Route: 048
     Dates: start: 20110615, end: 20110707
  17. METHADONE HCL [Suspect]
     Dosage: 60 MG, QD
     Route: 048
     Dates: start: 20110909, end: 20111201
  18. ENSURE                             /06184901/ [Concomitant]
     Indication: NUTRITIONAL SUPPORT
     Dosage: 250 ML, PRN
     Dates: start: 20110712
  19. FERROMIA                           /00023520/ [Concomitant]
     Dosage: 100 MG, QD
     Dates: start: 20111102
  20. CHLOMY-P [Concomitant]
     Dosage: , QD
     Route: 061
     Dates: start: 20110706
  21. 0.05% HEXIZAC WATER W [Concomitant]
     Dosage: UNK
     Dates: start: 20110707

REACTIONS (3)
  - ALTERED STATE OF CONSCIOUSNESS [None]
  - HYPOPHAGIA [None]
  - SOMNOLENCE [None]
